FAERS Safety Report 22267538 (Version 1)
Quarter: 2023Q2

REPORT INFORMATION
  Report Type: Spontaneous
  Country: GR (occurrence: GR)
  Receive Date: 20230430
  Receipt Date: 20230430
  Transmission Date: 20230722
  Serious: Yes (Death, Other)
  Sender: FDA-Public Use
  Company Number: GR-STRIDES ARCOLAB LIMITED-2023SP006336

PATIENT
  Age: 58 Year
  Sex: Female

DRUGS (9)
  1. DEXAMETHASONE [Suspect]
     Active Substance: DEXAMETHASONE
     Indication: Plasma cell myeloma
     Dosage: UNK, CYCLICAL; 2 CYCLES
     Route: 065
  2. DEXAMETHASONE [Suspect]
     Active Substance: DEXAMETHASONE
     Dosage: UNK, CYCLICAL; FOUR 28-DAY CYCLES
     Route: 065
  3. DEXAMETHASONE [Suspect]
     Active Substance: DEXAMETHASONE
     Dosage: UNK, CYCLICAL; THREE 21-DAY CYCLES
     Route: 065
  4. DEXAMETHASONE [Suspect]
     Active Substance: DEXAMETHASONE
     Dosage: 20 MILLIGRAM, CYCLICAL; PER WEEK; CYCLICAL THERAPY
     Route: 065
  5. LENALIDOMIDE [Suspect]
     Active Substance: LENALIDOMIDE
     Indication: Plasma cell myeloma
     Dosage: 25 MILLIGRAM, CYCLICAL; FOR 21 DAYS, CYCLICAL THERAPY (25MG PER DAY)
     Route: 065
  6. VINCRISTINE [Suspect]
     Active Substance: VINCRISTINE
     Indication: Plasma cell myeloma
     Dosage: UNK, CYCLICAL; 2 CYCLES
     Route: 065
  7. ADRIAMYCIN [Suspect]
     Active Substance: DOXORUBICIN HYDROCHLORIDE
     Indication: Plasma cell myeloma
     Dosage: UNK, CYCLICAL; 2 CYCLES
     Route: 065
  8. THALIDOMIDE [Suspect]
     Active Substance: THALIDOMIDE
     Indication: Plasma cell myeloma
     Dosage: UNK, CYCLICAL; FOUR 28-DAY CYCLES
     Route: 065
  9. BORTEZOMIB [Suspect]
     Active Substance: BORTEZOMIB
     Indication: Plasma cell myeloma
     Dosage: UNK, CYCLICAL; THREE 21-DAY CYCLES
     Route: 065

REACTIONS (5)
  - Death [Fatal]
  - Visceral leishmaniasis [Recovered/Resolved]
  - Plasma cell myeloma [Unknown]
  - Therapy non-responder [Unknown]
  - Therapy partial responder [Unknown]
